FAERS Safety Report 15656482 (Version 1)
Quarter: 2018Q4

REPORT INFORMATION
  Report Type: Spontaneous
  Country: US (occurrence: US)
  Receive Date: 20181126
  Receipt Date: 20181126
  Transmission Date: 20190205
  Serious: Yes (Hospitalization)
  Sender: FDA-Public Use
  Company Number: US-NOVOPROD-633771

PATIENT
  Age: 65 Year
  Sex: Female

DRUGS (1)
  1. NOVOLIN 70/30 [Suspect]
     Active Substance: INSULIN HUMAN
     Indication: DIABETES MELLITUS
     Dosage: UNK
     Route: 058

REACTIONS (4)
  - Cardiac failure [Not Recovered/Not Resolved]
  - Product storage error [Unknown]
  - Neoplasm malignant [Not Recovered/Not Resolved]
  - Blood glucose increased [Unknown]
